FAERS Safety Report 15737796 (Version 1)
Quarter: 2018Q4

REPORT INFORMATION
  Report Type: Spontaneous
  Country: US (occurrence: US)
  Receive Date: 20181219
  Receipt Date: 20181219
  Transmission Date: 20190205
  Serious: Yes (Death)
  Sender: FDA-Public Use
  Company Number: US-ROCHE-2232007

PATIENT
  Sex: Female

DRUGS (4)
  1. MEKINIST [Concomitant]
     Active Substance: TRAMETINIB DIMETHYL SULFOXIDE
  2. TAFINLAR [Concomitant]
     Active Substance: DABRAFENIB MESYLATE
  3. ZELBORAF [Concomitant]
     Active Substance: VEMURAFENIB
     Route: 065
  4. COTELLIC [Suspect]
     Active Substance: COBIMETINIB
     Indication: PRODUCT USED FOR UNKNOWN INDICATION
     Dosage: FOR 21 DAYS, OFF 7
     Route: 048
     Dates: start: 20181103

REACTIONS (1)
  - Death [Fatal]
